FAERS Safety Report 18437038 (Version 3)
Quarter: 2021Q1

REPORT INFORMATION
  Report Type: Spontaneous
  Country: US (occurrence: US)
  Receive Date: 20201028
  Receipt Date: 20210302
  Transmission Date: 20210419
  Serious: Yes (Other)
  Sender: FDA-Public Use
  Company Number: US-PFIZER INC-2020415972

PATIENT
  Age: 89 Year
  Sex: Female

DRUGS (5)
  1. LETROZOLE. [Concomitant]
     Active Substance: LETROZOLE
     Indication: BREAST CANCER FEMALE
     Dosage: UNK
     Dates: start: 20180716
  2. IBRANCE [Suspect]
     Active Substance: PALBOCICLIB
     Dosage: 100 MG, FROM CYCLE 4 ONWARD
     Route: 048
  3. IBRANCE [Suspect]
     Active Substance: PALBOCICLIB
     Dosage: 75 MG, CYCLIC (DAILY FOR 21 DAYS ON, 7 DAYS OFF ON A 28 DAY CYCLE)
     Route: 048
     Dates: start: 201904
  4. IBRANCE [Suspect]
     Active Substance: PALBOCICLIB
     Indication: BREAST CANCER FEMALE
     Dosage: 125 MG
     Route: 048
     Dates: start: 20180716
  5. IBRANCE [Suspect]
     Active Substance: PALBOCICLIB
     Dosage: 75 MG, CYCLIC (DAILY FOR 21 DAYS ON, 7 DAYS OFF ON A 28 DAY CYCLE)
     Route: 048
     Dates: start: 202011

REACTIONS (4)
  - Lymphoedema [Unknown]
  - Fatigue [Unknown]
  - Malaise [Unknown]
  - Neutropenia [Unknown]
